FAERS Safety Report 23250932 (Version 2)
Quarter: 2023Q4

REPORT INFORMATION
  Report Type: Report from Study
  Country: BR (occurrence: BR)
  Receive Date: 20231201
  Receipt Date: 20231218
  Transmission Date: 20240109
  Serious: Yes (Other)
  Sender: FDA-Public Use
  Company Number: BR-002147023-NVSC2023BR030183

PATIENT
  Age: 69 Year
  Sex: Female
  Weight: 65 kg

DRUGS (4)
  1. KISQALI [Suspect]
     Active Substance: RIBOCICLIB
     Indication: Breast cancer
     Dosage: UNK, (24/26 MG, 1.6X10 8 VIABLE CAR-POSITIVE T CELLS, 3 TABLETS)
     Route: 048
     Dates: start: 20221228, end: 20230512
  2. KISQALI [Suspect]
     Active Substance: RIBOCICLIB
     Dosage: 2 DOSAGE FORM (2 TABLETS)
     Route: 048
     Dates: start: 20231024
  3. BEPANTHOL [Concomitant]
     Indication: Blister
     Dosage: UNK
     Route: 065
  4. CAPTOPRIL [Concomitant]
     Active Substance: CAPTOPRIL
     Indication: Hypertension
     Dosage: 1 DOSAGE FORM (ONE TABLET), (ABOUT 15 YEARS AGO) BID
     Route: 048

REACTIONS (22)
  - Lung neoplasm malignant [Unknown]
  - Second primary malignancy [Unknown]
  - Eating disorder [Recovered/Resolved]
  - Fall [Recovered/Resolved]
  - Weight decreased [Recovered/Resolved]
  - Asthenia [Recovered/Resolved]
  - Vomiting [Recovered/Resolved]
  - Nausea [Recovered/Resolved]
  - Decreased appetite [Recovered/Resolved]
  - Feeling abnormal [Recovered/Resolved]
  - Illness [Recovered/Resolved]
  - Sluggishness [Recovered/Resolved]
  - Adverse drug reaction [Unknown]
  - Pain [Unknown]
  - Ill-defined disorder [Unknown]
  - Gait inability [Recovered/Resolved]
  - Decreased immune responsiveness [Recovered/Resolved]
  - Malaise [Recovered/Resolved]
  - Abdominal pain upper [Recovered/Resolved]
  - Headache [Recovered/Resolved]
  - Dizziness [Recovered/Resolved]
  - Abdominal discomfort [Recovered/Resolved]

NARRATIVE: CASE EVENT DATE: 20221201
